FAERS Safety Report 10241556 (Version 1)
Quarter: 2014Q2

REPORT INFORMATION
  Report Type: Spontaneous
  Country: GB (occurrence: GB)
  Receive Date: 20140617
  Receipt Date: 20140617
  Transmission Date: 20141212
  Serious: Yes (Other)
  Sender: FDA-Public Use
  Company Number: GB-JNJFOC-20140606581

PATIENT
  Age: 31 Year
  Sex: Female

DRUGS (2)
  1. INFLIXIMAB, RECOMBINANT [Suspect]
     Indication: CROHN^S DISEASE
     Dosage: RECEIVED INFLIXIMAB 11 MONTHS
     Route: 042
  2. AZATHIOPRINE [Suspect]
     Indication: CROHN^S DISEASE
     Dosage: 11 MONTHS
     Route: 065

REACTIONS (1)
  - Adenocarcinoma of the cervix [Unknown]
